FAERS Safety Report 9095417 (Version 1)
Quarter: 2013Q1

REPORT INFORMATION
  Report Type: Spontaneous
  Country: US (occurrence: None)
  Receive Date: 20130123
  Receipt Date: 20130123
  Transmission Date: 20140127
  Serious: Yes (Hospitalization)
  Sender: FDA-Public Use
  Company Number: PRAN20130001

PATIENT
  Age: 24 Year
  Sex: Male

DRUGS (1)
  1. PROPRANOLOL [Suspect]
     Indication: PRODUCT USED FOR UNKNOWN INDICATION

REACTIONS (11)
  - Mental status changes [None]
  - Agitation [None]
  - Disorientation [None]
  - Tachycardia [None]
  - Hyperhidrosis [None]
  - Mydriasis [None]
  - White blood cell count increased [None]
  - Blood lactic acid increased [None]
  - Blood creatine phosphokinase increased [None]
  - Blood bicarbonate decreased [None]
  - Substance-induced psychotic disorder [None]
